FAERS Safety Report 9328097 (Version 1)
Quarter: 2013Q2

REPORT INFORMATION
  Report Type: Spontaneous
  Country: US (occurrence: US)
  Receive Date: 20130604
  Receipt Date: 20130604
  Transmission Date: 20140414
  Serious: No
  Sender: FDA-Public Use
  Company Number: US-SANOFI-AVENTIS-2012SA032256

PATIENT
  Age: 64 Year
  Sex: Female
  Weight: 102.51 kg

DRUGS (3)
  1. LANTUS SOLOSTAR [Suspect]
     Indication: TYPE 2 DIABETES MELLITUS
     Dosage: DOSE:15 UNIT(S)
     Route: 058
     Dates: start: 201204
  2. SOLOSTAR [Suspect]
     Indication: TYPE 2 DIABETES MELLITUS
     Dates: start: 201204
  3. JANUVIA [Concomitant]

REACTIONS (7)
  - Endodontic procedure [Unknown]
  - Toothache [Unknown]
  - Dyspnoea [Unknown]
  - Arthropathy [Unknown]
  - Hypersensitivity [Unknown]
  - Rash [Unknown]
  - Injection site nodule [Unknown]
